FAERS Safety Report 8302544-9 (Version None)
Quarter: 2012Q2

REPORT INFORMATION
  Report Type: 
  Country: None (occurrence: None)
  Receive Date: 20120420
  Receipt Date: 20120329
  Transmission Date: 20120825
  Serious: No
  Sender: FDA-Public Use
  Company Number: US-BAYER-2012-037948

PATIENT
  Age: 27 Year
  Sex: Male

DRUGS (1)
  1. HELIXATE FS [Suspect]
     Indication: HAEMOPHILIA
     Dosage: 4000 IU, UNK
     Route: 042
     Dates: start: 20120101

REACTIONS (1)
  - URTICARIA [None]
